FAERS Safety Report 5177157-0 (Version None)
Quarter: 2006Q4

REPORT INFORMATION
  Report Type: 
  Country: None (occurrence: None)
  Receive Date: 20061207
  Receipt Date: 20061128
  Transmission Date: 20070319
  Serious: Yes (Other)
  Sender: FDA-Public Use
  Company Number: 2006146686

PATIENT
  Sex: Female

DRUGS (1)
  1. DEPO-PROVERA SUSPENSION/INJ [Suspect]
     Dosage: 150 MG (150 MG, 1ST INJECTION/EVERY THREE MONTHS)
     Route: 030
     Dates: start: 20040101, end: 20040101

REACTIONS (1)
  - CARDIAC DISORDER [None]
